FAERS Safety Report 22143699 (Version 1)
Quarter: 2023Q1

REPORT INFORMATION
  Report Type: Spontaneous
  Country: NO (occurrence: NO)
  Receive Date: 20230327
  Receipt Date: 20230327
  Transmission Date: 20230417
  Serious: Yes (Life-Threatening, Other)
  Sender: FDA-Public Use
  Company Number: None

PATIENT
  Sex: Female
  Weight: 61 kg

DRUGS (1)
  1. BOTOX [Suspect]
     Active Substance: ONABOTULINUMTOXINA
     Indication: Migraine
     Dosage: UNK, SINGLE, PATIENT HAVE USED THE DRUG 3 TIMES IN TOTAL (3 SEVERAL OCCASION)
     Route: 030
     Dates: start: 2021, end: 2021

REACTIONS (6)
  - Anxiety [Recovered/Resolved]
  - Suicidal ideation [Unknown]
  - Social fear [Unknown]
  - Panic reaction [Unknown]
  - Restlessness [Unknown]
  - Antisocial behaviour [Unknown]

NARRATIVE: CASE EVENT DATE: 20210101
